FAERS Safety Report 8529154 (Version 3)
Quarter: 2014Q1

REPORT INFORMATION
  Report Type: Report from Study
  Country: NO (occurrence: NO)
  Receive Date: 20120425
  Receipt Date: 20140106
  Transmission Date: 20141002
  Serious: Yes (Death, Life-Threatening)
  Sender: FDA-Public Use
  Company Number: NO-CELGENEUS-122-21880-12042258

PATIENT
  Age: 74 Year
  Sex: 0

DRUGS (7)
  1. REVLIMID [Suspect]
     Indication: MANTLE CELL LYMPHOMA
     Route: 048
     Dates: start: 20110714, end: 20120221
  2. REVLIMID [Suspect]
     Route: 048
  3. REVLIMID [Suspect]
     Dosage: 10 MILLIGRAM
     Route: 048
  4. REVLIMID [Suspect]
     Dosage: 10 MILLIGRAM
     Route: 048
  5. BENDAMUSTINE [Suspect]
     Indication: MANTLE CELL LYMPHOMA
     Route: 065
     Dates: start: 20110714, end: 20120221
  6. RITUXIMAB [Suspect]
     Indication: MANTLE CELL LYMPHOMA
     Route: 065
     Dates: start: 20110714, end: 20120221
  7. PREDNISOLONE [Concomitant]
     Indication: MANTLE CELL LYMPHOMA
     Route: 065

REACTIONS (1)
  - Squamous cell carcinoma of lung [Fatal]
